FAERS Safety Report 11251733 (Version 1)
Quarter: 2015Q3

REPORT INFORMATION
  Report Type: Spontaneous
  Country: US (occurrence: US)
  Receive Date: 20150708
  Receipt Date: 20150708
  Transmission Date: 20151125
  Serious: No
  Sender: FDA-Public Use
  Company Number: US-ELI_LILLY_AND_COMPANY-US201205001254

PATIENT
  Sex: Female
  Weight: 97.05 kg

DRUGS (2)
  1. ALIMTA [Suspect]
     Active Substance: PEMETREXED DISODIUM
     Dosage: UNK, EVERY FOUR WEEKS
     Dates: start: 20111010, end: 20120228
  2. ALIMTA [Suspect]
     Active Substance: PEMETREXED DISODIUM
     Indication: NON-SMALL CELL LUNG CANCER
     Dosage: 1060 MG, EVERY THREE WEEKS
     Route: 042
     Dates: start: 20110523

REACTIONS (11)
  - Pruritus [Recovered/Resolved]
  - Fatigue [Recovered/Resolved]
  - Dry eye [Recovered/Resolved]
  - Aphthous ulcer [Recovered/Resolved]
  - Nail hypertrophy [Recovered/Resolved]
  - Dysphonia [Recovered/Resolved]
  - Alopecia [Recovered/Resolved]
  - Chest discomfort [Recovered/Resolved]
  - Dry throat [Recovered/Resolved]
  - Paraesthesia [Recovered/Resolved]
  - Tinnitus [Recovered/Resolved]
